FAERS Safety Report 17403269 (Version 2)
Quarter: 2020Q1

REPORT INFORMATION
  Report Type: Spontaneous
  Country: US (occurrence: US)
  Receive Date: 20200211
  Receipt Date: 20200316
  Transmission Date: 20200409
  Serious: Yes (Hospitalization, Other)
  Sender: FDA-Public Use
  Company Number: NVSC2020US035487

PATIENT
  Age: 62 Year
  Sex: Male

DRUGS (2)
  1. FILGRASTIM [Suspect]
     Active Substance: FILGRASTIM
     Indication: MYELODYSPLASTIC SYNDROME
     Dosage: UNK
     Route: 065
  2. LENALIDOMIDE [Suspect]
     Active Substance: LENALIDOMIDE
     Indication: MYELODYSPLASTIC SYNDROME
     Dosage: 10 MG, QD
     Route: 065

REACTIONS (6)
  - Rash erythematous [Unknown]
  - Fatigue [Unknown]
  - Haemolysis [Recovering/Resolving]
  - Pancytopenia [Unknown]
  - Cold type haemolytic anaemia [Unknown]
  - Product use in unapproved indication [Unknown]
